FAERS Safety Report 9442906 (Version 1)
Quarter: 2013Q3

REPORT INFORMATION
  Report Type: Spontaneous
  Country: US (occurrence: US)
  Receive Date: 20130806
  Receipt Date: 20130806
  Transmission Date: 20140515
  Serious: Yes (Hospitalization)
  Sender: FDA-Public Use
  Company Number: US-ASTRAZENECA-2013SE57991

PATIENT
  Age: 45 Year
  Sex: Male
  Weight: 99.8 kg

DRUGS (6)
  1. NEXIUM [Suspect]
     Indication: OESOPHAGITIS ULCERATIVE
     Route: 048
     Dates: start: 201305, end: 20130701
  2. QUETIAPINE FUMARATE [Suspect]
     Indication: SLEEP DISORDER
     Route: 048
     Dates: start: 201302
  3. KLONOPIN [Concomitant]
     Indication: FEELING OF RELAXATION
     Route: 048
     Dates: start: 2010
  4. GABAPENT [Concomitant]
     Indication: FEELING OF RELAXATION
     Route: 048
     Dates: start: 201302
  5. RISPERDAL [Concomitant]
     Indication: HALLUCINATION
     Route: 048
     Dates: start: 2011
  6. PRILOSEC [Concomitant]

REACTIONS (5)
  - Anxiety [Recovered/Resolved]
  - Vomiting [Recovered/Resolved]
  - Nausea [Recovered/Resolved]
  - Malaise [Recovered/Resolved]
  - Drug dose omission [Not Recovered/Not Resolved]
